FAERS Safety Report 6600740-X (Version None)
Quarter: 2010Q1

REPORT INFORMATION
  Report Type: 
  Country: None (occurrence: None)
  Receive Date: 20100223
  Receipt Date: 20100223
  Transmission Date: 20100710
  Serious: Yes (Life-Threatening, Disabling)
  Sender: FDA-Public Use
  Company Number: None

PATIENT
  Age: 80 Year
  Sex: Male
  Weight: 78 kg

DRUGS (4)
  1. HYDROMORPHONE HCL [Suspect]
     Indication: PAIN
     Dosage: 4MG Q4H PRN PAIN IM
     Route: 030
     Dates: start: 20100215, end: 20100215
  2. ACETAMINOPHEN [Concomitant]
  3. GENTAMICIN [Concomitant]
  4. LEVOFLOXACIN [Concomitant]

REACTIONS (2)
  - EYE ROLLING [None]
  - UNRESPONSIVE TO STIMULI [None]
